FAERS Safety Report 21886525 (Version 4)
Quarter: 2023Q4

REPORT INFORMATION
  Report Type: Spontaneous
  Country: US (occurrence: US)
  Receive Date: 20230119
  Receipt Date: 20231009
  Transmission Date: 20240109
  Serious: Yes (Hospitalization)
  Sender: FDA-Public Use
  Company Number: US-TEVA-2023-US-2845758

PATIENT
  Age: 64 Year
  Sex: Male

DRUGS (5)
  1. MYCOPHENOLATE MOFETIL [Suspect]
     Active Substance: MYCOPHENOLATE MOFETIL
     Indication: Immunosuppressant drug therapy
     Dosage: 2 MILLIGRAM DAILY;
     Route: 065
  2. MYCOPHENOLATE MOFETIL [Suspect]
     Active Substance: MYCOPHENOLATE MOFETIL
     Dosage: 1000 MILLIGRAM DAILY;
     Route: 065
  3. TACROLIMUS [Suspect]
     Active Substance: TACROLIMUS
     Indication: Immunosuppressant drug therapy
     Dosage: 15 MILLIGRAM DAILY;
     Route: 065
  4. TACROLIMUS [Suspect]
     Active Substance: TACROLIMUS
     Dosage: TITRATED DOWN TO 3MG DURING THE DAY AND 3.5MG AT NIGHT
     Route: 065
  5. OFLOXACIN [Concomitant]
     Active Substance: OFLOXACIN
     Indication: Product used for unknown indication

REACTIONS (6)
  - Varicella zoster virus infection [Recovered/Resolved]
  - Meningoencephalitis viral [Recovered/Resolved]
  - Staphylococcal infection [Recovered/Resolved]
  - Herpes zoster oticus [Not Recovered/Not Resolved]
  - Otitis externa [Unknown]
  - Gradenigo^s syndrome [Unknown]
